FAERS Safety Report 10092407 (Version 1)
Quarter: 2014Q2

REPORT INFORMATION
  Report Type: Spontaneous
  Country: US (occurrence: US)
  Receive Date: 20140421
  Receipt Date: 20140421
  Transmission Date: 20141212
  Serious: No
  Sender: FDA-Public Use
  Company Number: US-SANOFI-AVENTIS-2013SA050108

PATIENT
  Sex: Female

DRUGS (3)
  1. ALLEGRA [Suspect]
     Dosage: 2 HRS BEFORE BED, AT 7 PM
     Route: 048
  2. CIPROFLOXACIN [Concomitant]
  3. LEVAQUIN [Concomitant]

REACTIONS (1)
  - Muscle spasms [Not Recovered/Not Resolved]
